FAERS Safety Report 16368160 (Version 1)
Quarter: 2019Q2

REPORT INFORMATION
  Report Type: Spontaneous
  Country: US (occurrence: US)
  Receive Date: 20190424
  Receipt Date: 20190424
  Transmission Date: 20190711
  Serious: No
  Sender: FDA-Public Use
  Company Number: None

PATIENT
  Age: 63 Year
  Sex: Male
  Weight: 81.65 kg

DRUGS (1)
  1. MAVYRET [Suspect]
     Active Substance: GLECAPREVIR\PIBRENTASVIR
     Indication: CHRONIC HEPATITIS C
     Dosage: ?          OTHER DOSE:TAKE 3 TABLETS WITH FOOD AS DIRECTED
     Route: 048
     Dates: start: 201903

REACTIONS (6)
  - Headache [None]
  - Chest discomfort [None]
  - Hypoaesthesia [None]
  - Muscle tightness [None]
  - Heart rate decreased [None]
  - Neck pain [None]
